FAERS Safety Report 24449356 (Version 4)
Quarter: 2024Q4

REPORT INFORMATION
  Report Type: Report from Study
  Country: US (occurrence: US)
  Receive Date: 20241017
  Receipt Date: 20241121
  Transmission Date: 20250115
  Serious: Yes (Death, Hospitalization, Other)
  Sender: ABBVIE
  Company Number: US-ABBVIE-5966883

PATIENT
  Age: 88 Year
  Sex: Male

DRUGS (1)
  1. SKYRIZI [Suspect]
     Active Substance: RISANKIZUMAB-RZAA
     Indication: Psoriasis
     Dosage: DRUG START AND STOP DATE: UNKNOWN
     Route: 058

REACTIONS (5)
  - Myocardial infarction [Fatal]
  - Renal impairment [Fatal]
  - Cerebrovascular accident [Unknown]
  - Cardiac ventricular thrombosis [Fatal]
  - Kidney infection [Unknown]

NARRATIVE: CASE EVENT DATE: 20240701
